FAERS Safety Report 4944128-6 (Version None)
Quarter: 2006Q1

REPORT INFORMATION
  Report Type: 
  Country: None (occurrence: None)
  Receive Date: 20060315
  Receipt Date: 20060310
  Transmission Date: 20060701
  Serious: Yes (Other)
  Sender: FDA-Public Use
  Company Number: PHEH2006US03261

PATIENT
  Age: 39 Year
  Sex: Male

DRUGS (1)
  1. CLOZARIL [Suspect]
     Indication: SCHIZOPHRENIA
     Dosage: 350 MG, QD
     Route: 048
     Dates: start: 19910101

REACTIONS (3)
  - SKIN CANCER [None]
  - SKIN GRAFT [None]
  - SKIN GRAFT FAILURE [None]
